FAERS Safety Report 23986209 (Version 2)
Quarter: 2024Q2

REPORT INFORMATION
  Report Type: Report from Study
  Country: FR (occurrence: FR)
  Receive Date: 20240618
  Receipt Date: 20240621
  Transmission Date: 20240716
  Serious: Yes (Hospitalization)
  Sender: FDA-Public Use
  Company Number: FR-ROCHE-3513902

PATIENT
  Age: 40 Year
  Sex: Female
  Weight: 47 kg

DRUGS (20)
  1. MYCOPHENOLATE MOFETIL [Suspect]
     Active Substance: MYCOPHENOLATE MOFETIL
     Indication: Lupus nephritis
     Dosage: 2000 MILLIGRAM (500 MG,2 TABLETS MORNING AND EVENING)
     Route: 048
     Dates: start: 20240128
  2. OBINUTUZUMAB [Suspect]
     Active Substance: OBINUTUZUMAB
     Indication: Lupus nephritis
     Dosage: 1000 MILLIGRAM
     Route: 042
     Dates: start: 20240131, end: 20240131
  3. OBINUTUZUMAB [Suspect]
     Active Substance: OBINUTUZUMAB
     Dosage: 1000 MILLIGRAM
     Route: 042
     Dates: start: 20240212, end: 20240212
  4. CLINDAMYCIN [Concomitant]
     Active Substance: CLINDAMYCIN
     Dosage: UNK
     Route: 065
  5. ACETAMINOPHEN [Concomitant]
     Active Substance: ACETAMINOPHEN
     Dosage: UNK
     Route: 065
  6. PLAQUENIL [Concomitant]
     Active Substance: HYDROXYCHLOROQUINE SULFATE
     Dosage: 400 MILLIGRAM (200 MG: 2 TABLETS IN THE MORNING)
     Route: 065
     Dates: start: 20240128
  7. CHOLECALCIFEROL [Concomitant]
     Active Substance: CHOLECALCIFEROL
     Dosage: 50000 INTERNATIONAL UNIT
     Route: 065
  8. FOLIC ACID [Concomitant]
     Active Substance: FOLIC ACID
     Dosage: 5 MILLIGRAM
     Route: 065
     Dates: start: 20240201
  9. RAMIPRIL [Concomitant]
     Active Substance: RAMIPRIL
     Dosage: 1.2 MILLIGRAM
     Route: 065
     Dates: start: 20240203, end: 20240206
  10. DOLIPRANE [Concomitant]
     Active Substance: ACETAMINOPHEN
     Indication: Pain
     Dosage: 1 GRAM
     Route: 065
     Dates: start: 20240322
  11. ARANESP [Concomitant]
     Active Substance: DARBEPOETIN ALFA
     Indication: Anaemia
     Dosage: UNK UNK, QW, 1 INTERNATIONAL UNIT
     Route: 065
     Dates: start: 20240322
  12. ALFUZOSIN [Concomitant]
     Active Substance: ALFUZOSIN
     Dosage: 10 MILLIGRAM
     Route: 065
     Dates: start: 20240311
  13. SOLU-MEDROL [Concomitant]
     Active Substance: METHYLPREDNISOLONE SODIUM SUCCINATE
     Dosage: 120 MILLIGRAM (SUBSEQUENT DOSING ON 27/JAN/2024, 28/JAN/2024)
     Route: 065
     Dates: start: 20240128, end: 20240128
  14. SOLU-MEDROL [Concomitant]
     Active Substance: METHYLPREDNISOLONE SODIUM SUCCINATE
     Dosage: 500 MILLIGRAM
     Route: 065
     Dates: start: 20240131, end: 20240131
  15. SOLU-MEDROL [Concomitant]
     Active Substance: METHYLPREDNISOLONE SODIUM SUCCINATE
     Dosage: UNK
     Route: 065
     Dates: start: 20240127, end: 20240127
  16. CLOBETASOL PROPIONATE [Concomitant]
     Active Substance: CLOBETASOL PROPIONATE
     Dosage: 1 UNK, 1 INTERNATIONAL UNIT (CLARELUX 500 MICROG/G CREAM)
     Route: 065
     Dates: start: 20240305
  17. LOVENOX [Concomitant]
     Active Substance: ENOXAPARIN SODIUM
     Dosage: 4000 MILLIGRAM
     Route: 065
     Dates: start: 20240129
  18. LOVENOX [Concomitant]
     Active Substance: ENOXAPARIN SODIUM
     Dosage: UNK, 400 INTERNATIONAL UNIT
     Route: 065
     Dates: start: 20240119, end: 20240212
  19. LYRICA [Concomitant]
     Active Substance: PREGABALIN
     Indication: Pain
     Dosage: 150 MILLIGRAM
     Route: 065
     Dates: start: 20240514
  20. VALACYCLOVIR HYDROCHLORIDE [Concomitant]
     Active Substance: VALACYCLOVIR HYDROCHLORIDE
     Indication: Pain
     Dosage: 3000 MILLIGRAM
     Route: 065
     Dates: start: 20240514

REACTIONS (5)
  - Complication associated with device [Not Recovered/Not Resolved]
  - Post lumbar puncture syndrome [Recovered/Resolved]
  - Acute kidney injury [Recovered/Resolved]
  - Herpes zoster [Recovered/Resolved]
  - Pyelonephritis [Recovered/Resolved]

NARRATIVE: CASE EVENT DATE: 20240207
